FAERS Safety Report 22211776 (Version 1)
Quarter: 2023Q2

REPORT INFORMATION
  Report Type: Spontaneous
  Country: IT (occurrence: IT)
  Receive Date: 20230414
  Receipt Date: 20230414
  Transmission Date: 20230722
  Serious: Yes (Other)
  Sender: FDA-Public Use
  Company Number: None

PATIENT
  Age: 71 Year
  Sex: Male
  Weight: 85 kg

DRUGS (5)
  1. AMIKACIN [Suspect]
     Active Substance: AMIKACIN
     Indication: Empyema
     Route: 065
     Dates: start: 20230303, end: 20230316
  2. ZERBAXA [Suspect]
     Active Substance: CEFTOLOZANE SULFATE\TAZOBACTAM SODIUM
     Indication: Empyema
     Dosage: 2+1G. FOR 3
     Route: 065
     Dates: start: 20230303, end: 20230316
  3. LINEZOLID [Concomitant]
     Active Substance: LINEZOLID
     Indication: Empyema
     Dosage: 600MG FOR 2
     Route: 065
     Dates: start: 20230303, end: 20230308
  4. PREGABALIN [Concomitant]
     Active Substance: PREGABALIN
     Indication: Product used for unknown indication
     Dosage: 75MG FOR 2
     Route: 065
     Dates: start: 20230218
  5. CITALOPRAM [Concomitant]
     Active Substance: CITALOPRAM HYDROBROMIDE
     Indication: Depression
     Route: 065
     Dates: start: 20230214

REACTIONS (1)
  - Erythema [Recovering/Resolving]
